FAERS Safety Report 4750423-6 (Version None)
Quarter: 2005Q3

REPORT INFORMATION
  Report Type: 
  Country: None (occurrence: None)
  Receive Date: 20050819
  Receipt Date: 20050726
  Transmission Date: 20060218
  Serious: Yes (Death)
  Sender: FDA-Public Use
  Company Number: 6016268

PATIENT
  Age: 90 Year
  Sex: Female

DRUGS (10)
  1. CARDENSIEL 1.25 MG (TABLET) (BISOPROLOL) [Suspect]
     Indication: ARRHYTHMIA
     Dosage: ORAL
     Route: 048
     Dates: start: 20050415, end: 20050427
  2. EPINITRIL (GLYCERYL TRINITRATE) [Suspect]
     Dosage: TRANSDERMAL
     Route: 062
     Dates: start: 20020515, end: 20050407
  3. ZYLORIC (TABLET) [Suspect]
     Indication: HYPERURICAEMIA
     Dosage: ORAL
     Route: 048
     Dates: start: 20050330, end: 20050427
  4. LASILIX TABLET (FUROSEMIDE) [Concomitant]
  5. PREVISCAN (TABLET) (FLUNDIONE) [Concomitant]
  6. ACETAMINOPHEN [Concomitant]
  7. ATACAND TABLET (CANDESARAN CILEXETIL) [Concomitant]
  8. LANZOR (LANSOPRAZOLE) [Concomitant]
  9. LEVOTHYROXINE SODIUM [Concomitant]
  10. PROPRANOLOL [Concomitant]

REACTIONS (20)
  - ABDOMINAL PAIN [None]
  - ALANINE AMINOTRANSFERASE INCREASED [None]
  - ASCITES [None]
  - ASPARTATE AMINOTRANSFERASE INCREASED [None]
  - BLOOD ALKALINE PHOSPHATASE INCREASED [None]
  - BLOOD LACTATE DEHYDROGENASE INCREASED [None]
  - BLOOD POTASSIUM INCREASED [None]
  - BLOOD SODIUM DECREASED [None]
  - C-REACTIVE PROTEIN INCREASED [None]
  - CHEST PAIN [None]
  - COAGULATION FACTOR V LEVEL DECREASED [None]
  - COMA [None]
  - DIFFICULTY IN WALKING [None]
  - GAMMA-GLUTAMYLTRANSFERASE INCREASED [None]
  - GENERAL PHYSICAL HEALTH DETERIORATION [None]
  - HEPATOMEGALY [None]
  - HYPERURICAEMIA [None]
  - PLEURAL EFFUSION [None]
  - SELF-MEDICATION [None]
  - SOMNOLENCE [None]
